FAERS Safety Report 14559852 (Version 1)
Quarter: 2018Q1

REPORT INFORMATION
  Report Type: Spontaneous
  Country: US (occurrence: US)
  Receive Date: 20180220
  Receipt Date: 20180220
  Transmission Date: 20180509
  Serious: No
  Sender: FDA-Public Use
  Company Number: None

PATIENT
  Sex: Female
  Weight: 56.25 kg

DRUGS (3)
  1. MIRENA [Concomitant]
     Active Substance: LEVONORGESTREL
  2. BIRTH CONTROL [Concomitant]
     Active Substance: UNSPECIFIED INGREDIENT
  3. CLAZ TAB 500MG (CLARITHROMYCIN) [Suspect]
     Active Substance: CLARITHROMYCIN
     Indication: HELICOBACTER INFECTION
     Dosage: ?          QUANTITY:1 TABLET(S);?
     Route: 048
     Dates: start: 20180216, end: 201802

REACTIONS (1)
  - Dysgeusia [None]

NARRATIVE: CASE EVENT DATE: 20180216
